FAERS Safety Report 7595168-2 (Version None)
Quarter: 2011Q2

REPORT INFORMATION
  Report Type: 
  Country: None (occurrence: None)
  Receive Date: 20110620
  Receipt Date: 20110408
  Transmission Date: 20111010
  Serious: Yes (Hospitalization)
  Sender: FDA-Public Use
  Company Number: UTC-006241

PATIENT
  Age: 75 Year
  Sex: Female
  Weight: 81.8 kg

DRUGS (2)
  1. VIAGRA [Concomitant]
  2. TYVASO [Suspect]
     Indication: PULMONARY ARTERIAL HYPERTENSION
     Dosage: 144 MCG (36 MCG. 4 OM 1 D), INHALATION
     Route: 055
     Dates: start: 20101230, end: 20110322

REACTIONS (2)
  - DRUG INEFFECTIVE [None]
  - COUGH [None]
